FAERS Safety Report 16770864 (Version 2)
Quarter: 2019Q3

REPORT INFORMATION
  Report Type: Spontaneous
  Country: US (occurrence: US)
  Receive Date: 20190904
  Receipt Date: 20190930
  Transmission Date: 20191005
  Serious: Yes (Other)
  Sender: FDA-Public Use
  Company Number: US-MYLANLABS-2019M1077167

PATIENT
  Age: 66 Year
  Sex: Female
  Weight: 61 kg

DRUGS (3)
  1. AMITRIPTYLINE [Suspect]
     Active Substance: AMITRIPTYLINE
     Indication: NERVE INJURY
     Dosage: 20 MILLIGRAM
     Route: 048
     Dates: start: 201801, end: 201803
  2. ATORVASTATIN [Concomitant]
     Active Substance: ATORVASTATIN
     Indication: BLOOD CHOLESTEROL ABNORMAL
  3. AMITRIPTYLINE [Suspect]
     Active Substance: AMITRIPTYLINE
     Indication: COUGH
     Dosage: 10 UNK
     Route: 048
     Dates: start: 201701

REACTIONS (8)
  - Sialoadenitis [Unknown]
  - Oral pain [Not Recovered/Not Resolved]
  - Dry mouth [Not Recovered/Not Resolved]
  - Nerve injury [Not Recovered/Not Resolved]
  - Off label use [Recovered/Resolved]
  - Oral mucosal blistering [Not Recovered/Not Resolved]
  - Candida infection [Not Recovered/Not Resolved]
  - Oral lichen planus [Unknown]

NARRATIVE: CASE EVENT DATE: 201701
